FAERS Safety Report 25294196 (Version 1)
Quarter: 2025Q2

REPORT INFORMATION
  Report Type: Spontaneous
  Country: US (occurrence: US)
  Receive Date: 20250511
  Receipt Date: 20250511
  Transmission Date: 20250717
  Serious: No
  Sender: SANOFI AVENTIS
  Company Number: US-SA-2025SA125209

PATIENT
  Age: 63 Year
  Sex: Female

DRUGS (19)
  1. DUPIXENT [Suspect]
     Active Substance: DUPILUMAB
     Indication: Cataract
     Route: 058
     Dates: start: 20250426
  2. ALBUTEROL SULFATE [Concomitant]
     Active Substance: ALBUTEROL SULFATE
  3. ALLEGRA ALLERGY [Concomitant]
     Active Substance: FEXOFENADINE HYDROCHLORIDE
  4. ASPIRIN [Concomitant]
     Active Substance: ASPIRIN
  5. CARVEDILOL [Concomitant]
     Active Substance: CARVEDILOL
  6. ENVARSUS XR [Concomitant]
     Active Substance: TACROLIMUS
  7. FLONASE ALLERGY RELIEF [Concomitant]
     Active Substance: FLUTICASONE PROPIONATE
  8. FLUTICASONE [Concomitant]
     Active Substance: FLUTICASONE
  9. JARDIANCE [Concomitant]
     Active Substance: EMPAGLIFLOZIN
  10. LISINOPRIL [Concomitant]
     Active Substance: LISINOPRIL
  11. NOVOLOG [Concomitant]
     Active Substance: INSULIN ASPART
  12. POTASSIUM CITRATE [Concomitant]
     Active Substance: POTASSIUM CITRATE
  13. PREDNISONE [Concomitant]
     Active Substance: PREDNISONE
  14. PROBIOTICS NOS [Concomitant]
     Active Substance: PROBIOTICS NOS
  15. REPATHA [Concomitant]
     Active Substance: EVOLOCUMAB
  16. TOUJEO MAX [Concomitant]
     Active Substance: INSULIN GLARGINE
  17. TRULICITY [Concomitant]
     Active Substance: DULAGLUTIDE
  18. VITAMIN C [Concomitant]
     Active Substance: ASCORBIC ACID
  19. VITAMIN D3 [Concomitant]
     Active Substance: CHOLECALCIFEROL

REACTIONS (5)
  - Fatigue [Recovered/Resolved]
  - Myalgia [Recovered/Resolved]
  - Muscular weakness [Recovered/Resolved]
  - Dizziness [Recovered/Resolved]
  - Product use in unapproved indication [Unknown]

NARRATIVE: CASE EVENT DATE: 20250401
